FAERS Safety Report 4821979-X (Version None)
Quarter: 2005Q4

REPORT INFORMATION
  Report Type: 
  Country: None (occurrence: None)
  Receive Date: 20051103
  Receipt Date: 20051021
  Transmission Date: 20060501
  Serious: Yes (Other)
  Sender: FDA-Public Use
  Company Number: CERZ-11038

PATIENT
  Age: 29 Year
  Sex: Female
  Weight: 42 kg

DRUGS (3)
  1. CEREZYME [Suspect]
     Indication: GAUCHER'S DISEASE
     Dosage: 2600 UNITS Q2WKS IV
     Route: 042
     Dates: start: 20020430
  2. LOXOPROFEN SODIUM [Concomitant]
  3. TEPRENONE [Concomitant]

REACTIONS (4)
  - NASOPHARYNGITIS [None]
  - PHARYNGITIS [None]
  - UPPER RESPIRATORY TRACT INFLAMMATION [None]
  - VENTRICULAR EXTRASYSTOLES [None]
